FAERS Safety Report 16715407 (Version 1)
Quarter: 2019Q3

REPORT INFORMATION
  Report Type: Spontaneous
  Country: US (occurrence: US)
  Receive Date: 20190819
  Receipt Date: 20190819
  Transmission Date: 20191005
  Serious: No
  Sender: FDA-Public Use
  Company Number: US-PFIZER INC-2019350295

PATIENT
  Age: 51 Year
  Sex: Male

DRUGS (2)
  1. AMLODIPINE BESILATE [Suspect]
     Active Substance: AMLODIPINE BESYLATE
     Dosage: UNK
  2. ENALAPRIL MALEATE/FELODIPINE [Suspect]
     Active Substance: ENALAPRIL MALEATE\FELODIPINE
     Dosage: UNK

REACTIONS (1)
  - Drug hypersensitivity [Unknown]
